FAERS Safety Report 6835296-X (Version None)
Quarter: 2010Q3

REPORT INFORMATION
  Report Type: 
  Country: None (occurrence: None)
  Receive Date: 20100713
  Receipt Date: 20100704
  Transmission Date: 20110219
  Serious: Yes (Death)
  Sender: FDA-Public Use
  Company Number: BE-JNJFOC-20100702433

PATIENT
  Age: 37 Year
  Sex: Male

DRUGS (2)
  1. HALOPERIDOL [Suspect]
     Indication: SCHIZOPHRENIA
     Route: 065
  2. OLANZAPINE [Suspect]
     Indication: SCHIZOPHRENIA
     Route: 065

REACTIONS (1)
  - EMBOLISM VENOUS [None]
